FAERS Safety Report 19240662 (Version 1)
Quarter: 2021Q2

REPORT INFORMATION
  Report Type: Spontaneous
  Country: US (occurrence: US)
  Receive Date: 20210511
  Receipt Date: 20210511
  Transmission Date: 20210717
  Serious: Yes (Hospitalization)
  Sender: FDA-Public Use
  Company Number: US-CYCLE PHARMACEUTICALS LTD-2021-CYC-000014

PATIENT
  Sex: Female

DRUGS (3)
  1. NITYR [Suspect]
     Active Substance: NITISINONE
     Dosage: 50 MG, BID
     Route: 048
  2. NITYR [Suspect]
     Active Substance: NITISINONE
     Indication: TYROSINAEMIA
     Dosage: 50 MG, BID
     Route: 048
     Dates: start: 201810
  3. NITYR [Suspect]
     Active Substance: NITISINONE
     Dosage: 80 MG, BID
     Route: 048
     Dates: start: 202103

REACTIONS (2)
  - Abdominal pain upper [Recovered/Resolved]
  - Neck pain [Recovered/Resolved]
